FAERS Safety Report 14778682 (Version 2)
Quarter: 2018Q3

REPORT INFORMATION
  Report Type: Spontaneous
  Country: FR (occurrence: FR)
  Receive Date: 20180419
  Receipt Date: 20180914
  Transmission Date: 20181010
  Serious: Yes (Hospitalization, Other)
  Sender: FDA-Public Use
  Company Number: FR-AUROBINDO-AUR-APL-2017-40861

PATIENT
  Age: 45 Year
  Sex: Male

DRUGS (3)
  1. RIFAMPICIN [Suspect]
     Active Substance: RIFAMPIN
     Indication: SEPSIS
     Dosage: UNK
     Route: 065
  2. THIAMPHENICOL [Suspect]
     Active Substance: THIAMPHENICOL
     Indication: SEPSIS
     Dosage: UNK
     Route: 065
  3. PARACETAMOL [Suspect]
     Active Substance: ACETAMINOPHEN
     Indication: SEPSIS
     Dosage: 3 G, UNK
     Route: 065

REACTIONS (2)
  - Hepatic necrosis [Unknown]
  - Drug-induced liver injury [Unknown]
